FAERS Safety Report 25356241 (Version 1)
Quarter: 2025Q2

REPORT INFORMATION
  Report Type: Spontaneous
  Country: US (occurrence: US)
  Receive Date: 20250526
  Receipt Date: 20250526
  Transmission Date: 20250717
  Serious: Yes (Life-Threatening, Hospitalization, Other)
  Sender: Kenvue
  Company Number: US-KENVUE-20250505914

PATIENT
  Age: 35 Year
  Sex: Female

DRUGS (1)
  1. DIPHENHYDRAMINE HYDROCHLORIDE [Suspect]
     Active Substance: DIPHENHYDRAMINE HYDROCHLORIDE
     Indication: Product used for unknown indication
     Route: 048

REACTIONS (5)
  - Mental status changes [Unknown]
  - Intentional self-injury [Unknown]
  - Generalised tonic-clonic seizure [Unknown]
  - Bundle branch block left [Unknown]
  - Product administration error [Unknown]
